FAERS Safety Report 7218526-4 (Version None)
Quarter: 2011Q1

REPORT INFORMATION
  Report Type: 
  Country: None (occurrence: None)
  Receive Date: 20110110
  Receipt Date: 20110108
  Transmission Date: 20110831
  Serious: Yes (Hospitalization, Other)
  Sender: FDA-Public Use
  Company Number: DE-ABBOTT-10P-062-0682014-00

PATIENT
  Sex: Female

DRUGS (3)
  1. UNKNOWN DRUG AGAINST COLLAGEN DISEASES [Concomitant]
     Indication: COLLAGEN DISORDER
  2. HUMIRA [Suspect]
     Indication: RHEUMATOID ARTHRITIS
     Route: 058
     Dates: start: 20100122
  3. PREDNISOLONE [Concomitant]
     Indication: PRODUCT USED FOR UNKNOWN INDICATION

REACTIONS (4)
  - UPPER LIMB FRACTURE [None]
  - NECROSIS [None]
  - HERPES ZOSTER [None]
  - CATHETER SITE INFECTION [None]
